FAERS Safety Report 9140076 (Version 2)
Quarter: 2014Q1

REPORT INFORMATION
  Report Type: Spontaneous
  Country: US (occurrence: US)
  Receive Date: 20130305
  Receipt Date: 20140214
  Transmission Date: 20141002
  Serious: Yes (Hospitalization, Other)
  Sender: FDA-Public Use
  Company Number: US-ASTELLAS-2013US002375

PATIENT
  Age: 74 Year
  Sex: Male
  Weight: 64 kg

DRUGS (1)
  1. PROGRAF [Suspect]
     Indication: RENAL TRANSPLANT
     Dosage: 2 MG IN THE MORINING AND 3 MG IN THE EVENING, UID/QD
     Route: 048
     Dates: start: 20081204

REACTIONS (3)
  - VIIth nerve paralysis [Unknown]
  - Infection parasitic [Unknown]
  - Pneumonia [Unknown]
